FAERS Safety Report 16000488 (Version 1)
Quarter: 2019Q1

REPORT INFORMATION
  Report Type: Spontaneous
  Country: GR (occurrence: GR)
  Receive Date: 20190225
  Receipt Date: 20190225
  Transmission Date: 20190418
  Serious: Yes (Other)
  Sender: FDA-Public Use
  Company Number: GR-MYLANLABS-2019M1015433

PATIENT
  Age: 14 Year
  Sex: Male

DRUGS (2)
  1. PHENYTOIN. [Suspect]
     Active Substance: PHENYTOIN
     Indication: EPILEPSY
     Dosage: UNK
  2. CARBAMAZEPINE. [Concomitant]
     Active Substance: CARBAMAZEPINE
     Indication: EPILEPSY
     Dosage: UNK

REACTIONS (7)
  - Gaze palsy [Unknown]
  - Headache [Unknown]
  - Disease recurrence [Unknown]
  - Somnolence [Unknown]
  - Photophobia [Unknown]
  - Vomiting [Unknown]
  - Hallucination, visual [Unknown]
